FAERS Safety Report 6907283-4 (Version None)
Quarter: 2010Q3

REPORT INFORMATION
  Report Type: 
  Country: None (occurrence: None)
  Receive Date: 20100730
  Receipt Date: 20100722
  Transmission Date: 20110219
  Serious: Yes (Other)
  Sender: FDA-Public Use
  Company Number: 016026

PATIENT
  Age: 40 Year
  Sex: Female
  Weight: 52 kg

DRUGS (4)
  1. KEPPRA [Suspect]
     Indication: CONVULSION
     Dosage: 500 MG ORAL, 1000 MG, 3000 MG, DOSE REDUCED
     Route: 048
     Dates: start: 20100614
  2. LEVETIRACETAM [Concomitant]
  3. TOPIRAMATE [Concomitant]
  4. CLONAZEPAM [Concomitant]

REACTIONS (11)
  - ALOPECIA [None]
  - CLUMSINESS [None]
  - CONSTIPATION [None]
  - CONVULSION [None]
  - DEPRESSION [None]
  - GAIT DISTURBANCE [None]
  - HYPERSOMNIA [None]
  - JUDGEMENT IMPAIRED [None]
  - MEMORY IMPAIRMENT [None]
  - MIGRAINE [None]
  - NAUSEA [None]
